FAERS Safety Report 6869196-6 (Version None)
Quarter: 2010Q3

REPORT INFORMATION
  Report Type: 
  Country: None (occurrence: None)
  Receive Date: 20100722
  Receipt Date: 20080721
  Transmission Date: 20110219
  Serious: No
  Sender: FDA-Public Use
  Company Number: US-PFIZER INC-2008054530

PATIENT
  Sex: Male
  Weight: 104.33 kg

DRUGS (3)
  1. CHANTIX [Suspect]
     Indication: SMOKING CESSATION THERAPY
     Route: 048
     Dates: start: 20080610, end: 20080624
  2. LEXAPRO [Concomitant]
  3. TOPROL-XL [Concomitant]

REACTIONS (2)
  - DEPRESSION [None]
  - PERSONALITY CHANGE [None]
